FAERS Safety Report 5958181-4 (Version None)
Quarter: 2008Q4

REPORT INFORMATION
  Report Type: 
  Country: None (occurrence: None)
  Receive Date: 20081117
  Receipt Date: 20081117
  Transmission Date: 20090506
  Serious: Yes (Life-Threatening, Hospitalization)
  Sender: FDA-Public Use
  Company Number: None

PATIENT
  Age: 53 Year
  Sex: Female
  Weight: 84.8226 kg

DRUGS (2)
  1. BACTRIM DS [Suspect]
     Indication: SKIN LACERATION
     Dosage: 1 TABLET TWICE A DAY PO
     Route: 048
     Dates: start: 20080621, end: 20080629
  2. . [Concomitant]

REACTIONS (3)
  - COMA [None]
  - LACERATION [None]
  - RENAL FAILURE [None]
